FAERS Safety Report 20199778 (Version 2)
Quarter: 2024Q1

REPORT INFORMATION
  Report Type: Spontaneous
  Country: US (occurrence: US)
  Receive Date: 20211217
  Receipt Date: 20240201
  Transmission Date: 20240410
  Serious: No
  Sender: FDA-Public Use
  Company Number: US-NOVEN PHARMACEUTICALS, INC.-2021-NOV-US003682

PATIENT
  Age: 61 Year
  Sex: Female

DRUGS (2)
  1. ESTRADIOL [Suspect]
     Active Substance: ESTRADIOL
     Indication: Menopausal symptoms
     Dosage: 0.075 MG, UNKNOWN
     Route: 062
  2. ESTRADIOL [Suspect]
     Active Substance: ESTRADIOL
     Dosage: 0.075 MG, UNKNOWN
     Route: 062

REACTIONS (2)
  - Therapeutic product ineffective [Not Recovered/Not Resolved]
  - Product quality issue [Not Recovered/Not Resolved]

NARRATIVE: CASE EVENT DATE: 20210701
